FAERS Safety Report 20810570 (Version 2)
Quarter: 2022Q3

REPORT INFORMATION
  Report Type: Spontaneous
  Country: US (occurrence: US)
  Receive Date: 20220510
  Receipt Date: 20220908
  Transmission Date: 20221027
  Serious: Yes (Other)
  Sender: FDA-Public Use
  Company Number: US-BRISTOL-MYERS SQUIBB COMPANY-2022-019543

PATIENT
  Age: 70 Year
  Sex: Female

DRUGS (1)
  1. POMALYST [Suspect]
     Active Substance: POMALIDOMIDE
     Indication: Product used for unknown indication
     Dosage: DOSE: 2MG, FREQ: DAILY
     Route: 048
     Dates: start: 202002

REACTIONS (2)
  - Lymphoma [Unknown]
  - Fatigue [Unknown]

NARRATIVE: CASE EVENT DATE: 20220407
